FAERS Safety Report 14284582 (Version 1)
Quarter: 2017Q4

REPORT INFORMATION
  Report Type: Spontaneous
  Country: GB (occurrence: GB)
  Receive Date: 20171214
  Receipt Date: 20171214
  Transmission Date: 20180321
  Serious: Yes (Death, Hospitalization)
  Sender: FDA-Public Use
  Company Number: GB-BAYER-2017-235644

PATIENT
  Age: 84 Year
  Weight: 98 kg

DRUGS (16)
  1. ISOSORBIDE MONONITRATE. [Concomitant]
     Active Substance: ISOSORBIDE MONONITRATE
  2. LISINOPRIL. [Concomitant]
     Active Substance: LISINOPRIL
  3. FERROUS FUMARATE [Concomitant]
     Active Substance: FERROUS FUMARATE
  4. FINASTERIDE. [Concomitant]
     Active Substance: FINASTERIDE
  5. NOVOMIX [INSULIN ASPART] [Concomitant]
     Active Substance: INSULIN ASPART
  6. XARELTO [Suspect]
     Active Substance: RIVAROXABAN
     Indication: ATRIAL FIBRILLATION
     Dosage: 15 MG, UNK
     Route: 048
  7. TRAMADOL. [Concomitant]
     Active Substance: TRAMADOL
  8. FUROSEMIDE. [Concomitant]
     Active Substance: FUROSEMIDE
  9. CLOPIDOGREL [Suspect]
     Active Substance: CLOPIDOGREL BISULFATE
     Indication: PROPHYLAXIS
     Dosage: 75 MG, UNK
     Route: 048
  10. ACETYLSALICYLIC ACID({=100 MG) [Suspect]
     Active Substance: ASPIRIN
     Indication: PROPHYLAXIS
     Dosage: 75 MG, UNK
     Route: 048
  11. LANSOPRAZOLE. [Concomitant]
     Active Substance: LANSOPRAZOLE
  12. ADALAT CC [Concomitant]
     Active Substance: NIFEDIPINE
  13. PARACETAMOL [Concomitant]
     Active Substance: ACETAMINOPHEN
  14. FOLIC ACID. [Concomitant]
     Active Substance: FOLIC ACID
  15. ATORVASTATIN [Concomitant]
     Active Substance: ATORVASTATIN
  16. BISOPROLOL [Concomitant]
     Active Substance: BISOPROLOL

REACTIONS (4)
  - Subdural haemorrhage [Fatal]
  - Acute kidney injury [Fatal]
  - Agitation [Fatal]
  - Confusional state [Fatal]

NARRATIVE: CASE EVENT DATE: 20171119
